FAERS Safety Report 7635190-0 (Version None)
Quarter: 2011Q3

REPORT INFORMATION
  Report Type: 
  Country: None (occurrence: None)
  Receive Date: 20110726
  Receipt Date: 20110715
  Transmission Date: 20111222
  Serious: Yes (Hospitalization)
  Sender: FDA-Public Use
  Company Number: CA-AMGEN-CANSP2011036269

PATIENT
  Age: 75 Year
  Sex: Female

DRUGS (20)
  1. QUININE SULFATE [Concomitant]
  2. LASIX [Concomitant]
  3. CARBACHOL [Concomitant]
  4. SYNTHROID [Concomitant]
  5. ASPIRIN [Concomitant]
  6. ZYLOPRIM [Concomitant]
  7. PRAVACHOL [Concomitant]
  8. COLACE [Concomitant]
  9. PLAVIX [Concomitant]
  10. MONOCOR [Concomitant]
  11. NORVASC [Concomitant]
  12. DITROPAN [Concomitant]
  13. LANTUS [Concomitant]
  14. HUMALOG [Concomitant]
  15. TYLENOL (CAPLET) [Concomitant]
  16. ARANESP [Suspect]
     Indication: RENAL FAILURE CHRONIC
     Dosage: 40 A?G, Q2WK
     Route: 058
  17. SENOKOT [Concomitant]
  18. ALDACTONE [Concomitant]
  19. VITAMIN B12                        /00056201/ [Concomitant]
  20. IMDUR [Concomitant]

REACTIONS (1)
  - ABDOMINAL ABSCESS [None]
